FAERS Safety Report 19031290 (Version 1)
Quarter: 2021Q1

REPORT INFORMATION
  Report Type: Spontaneous
  Country: CA (occurrence: US)
  Receive Date: 20210318
  Receipt Date: 20210318
  Transmission Date: 20210420
  Serious: Yes (Hospitalization)
  Sender: FDA-Public Use
  Company Number: None

PATIENT
  Age: 11 Year
  Sex: Male
  Weight: 61.1 kg

DRUGS (5)
  1. CYCLOPHOSPHAMIDE. [Suspect]
     Active Substance: CYCLOPHOSPHAMIDE
     Dates: end: 20210208
  2. VINCRISTINE SULFATE. [Suspect]
     Active Substance: VINCRISTINE SULFATE
     Dates: end: 20210303
  3. CYTARABINE. [Suspect]
     Active Substance: CYTARABINE
     Dates: end: 20210219
  4. METHOTREXATE. [Suspect]
     Active Substance: METHOTREXATE
     Dates: end: 20210222
  5. ONCASPAR [Suspect]
     Active Substance: PEGASPARGASE
     Dates: end: 20210223

REACTIONS (15)
  - Candida infection [None]
  - Thrombocytopenia [None]
  - Urethral injury [None]
  - Sepsis [None]
  - Mucosal inflammation [None]
  - Colitis [None]
  - Culture wound positive [None]
  - Haemorrhage [None]
  - Fungaemia [None]
  - Hypotension [None]
  - Genitourinary symptom [None]
  - Blood sodium increased [None]
  - Hypoxia [None]
  - Iatrogenic injury [None]
  - Neutropenia [None]

NARRATIVE: CASE EVENT DATE: 20210306
